FAERS Safety Report 16963987 (Version 1)
Quarter: 2019Q4

REPORT INFORMATION
  Report Type: Spontaneous
  Country: US (occurrence: US)
  Receive Date: 20191026
  Receipt Date: 20191026
  Transmission Date: 20200122
  Serious: Yes (Life-Threatening, Hospitalization, Other)
  Sender: FDA-Public Use
  Company Number: US-SHILPA MEDICARE LIMITED-SML-US-2019-00218

PATIENT
  Age: 75 Year
  Sex: Male

DRUGS (4)
  1. CAPECITABINE, UNKNOWN [Suspect]
     Active Substance: CAPECITABINE
     Indication: DUCTAL ADENOCARCINOMA OF PANCREAS
     Dosage: (620 MG/M2, AS 1,150 MG BID ON DAYS 1-21).
     Route: 048
  2. GEMCITABINE. [Suspect]
     Active Substance: GEMCITABINE
     Indication: INTRADUCTAL PAPILLARY MUCINOUS NEOPLASM
     Dosage: 1000 MG/M2 AS 1862 MG ON DAY 1, 8 AND 15 ON A 28 DAY CYCLE FOR 6 CYCLES
     Route: 065
  3. GEMCITABINE. [Suspect]
     Active Substance: GEMCITABINE
     Indication: DUCTAL ADENOCARCINOMA OF PANCREAS
  4. CAPECITABINE, UNKNOWN [Suspect]
     Active Substance: CAPECITABINE
     Indication: INTRADUCTAL PAPILLARY MUCINOUS NEOPLASM

REACTIONS (9)
  - Pulmonary toxicity [Not Recovered/Not Resolved]
  - Cardiac arrest [Recovered/Resolved]
  - Acute respiratory distress syndrome [Not Recovered/Not Resolved]
  - Pulseless electrical activity [Recovered/Resolved]
  - Pulmonary oedema [Not Recovered/Not Resolved]
  - Atelectasis [Not Recovered/Not Resolved]
  - Pulmonary fibrosis [Not Recovered/Not Resolved]
  - Respiratory failure [Not Recovered/Not Resolved]
  - Diffuse alveolar damage [Not Recovered/Not Resolved]
